FAERS Safety Report 11739525 (Version 1)
Quarter: 2015Q4

REPORT INFORMATION
  Report Type: Spontaneous
  Country: ES (occurrence: ES)
  Receive Date: 20151113
  Receipt Date: 20151113
  Transmission Date: 20160304
  Serious: Yes (Other)
  Sender: FDA-Public Use
  Company Number: ALCN2015ES006933

PATIENT
  Age: 8 Year

DRUGS (1)
  1. CYCLOPENTOLATE HCL [Suspect]
     Active Substance: CYCLOPENTOLATE HYDROCHLORIDE
     Indication: PRODUCT USED FOR UNKNOWN INDICATION
     Dosage: UNK
     Route: 047
     Dates: start: 20151102

REACTIONS (5)
  - Hallucination [Unknown]
  - Asthenia [Unknown]
  - Slow speech [Unknown]
  - Expired product administered [Unknown]
  - Disorientation [Unknown]

NARRATIVE: CASE EVENT DATE: 20151102
